FAERS Safety Report 9265016 (Version 2)
Quarter: 2013Q2

REPORT INFORMATION
  Report Type: Spontaneous
  Country: US (occurrence: None)
  Receive Date: 20130425
  Receipt Date: 20130508
  Transmission Date: 20140414
  Serious: Yes (Hospitalization, Other)
  Sender: FDA-Public Use
  Company Number: ADR-2013-00709

PATIENT
  Sex: Female

DRUGS (1)
  1. BACLOFEN [Suspect]
     Dosage: SEE B5

REACTIONS (13)
  - Suture rupture [None]
  - Device related infection [None]
  - Urinary tract infection pseudomonal [None]
  - Serratia test positive [None]
  - Staphylococcus test positive [None]
  - Purulent discharge [None]
  - Implant site infection [None]
  - Implant site discharge [None]
  - Implant site fibrosis [None]
  - Abdominal wound dehiscence [None]
  - Culture wound positive [None]
  - Pseudomonas infection [None]
  - Scar [None]
